FAERS Safety Report 10012534 (Version 1)
Quarter: 2014Q1

REPORT INFORMATION
  Report Type: Spontaneous
  Country: US (occurrence: US)
  Receive Date: 20140314
  Receipt Date: 20140314
  Transmission Date: 20141002
  Serious: Yes (Death)
  Sender: FDA-Public Use
  Company Number: US-ASTRAZENECA-2014SE18063

PATIENT
  Age: 87 Year
  Sex: Male
  Weight: 66.7 kg

DRUGS (4)
  1. BRILINTA [Suspect]
     Route: 048
     Dates: start: 2013
  2. ASPIRIN [Concomitant]
     Dosage: 81 MG
  3. BLOOD PRESSURE MEDICATION [Concomitant]
     Indication: BLOOD PRESSURE ABNORMAL
  4. CHOLESTEROL MEDICATION [Concomitant]
     Indication: BLOOD CHOLESTEROL ABNORMAL

REACTIONS (1)
  - Cerebral haemorrhage [Fatal]
